FAERS Safety Report 6417349-3 (Version None)
Quarter: 2009Q4

REPORT INFORMATION
  Report Type: 
  Country: None (occurrence: None)
  Receive Date: 20091028
  Receipt Date: 20091015
  Transmission Date: 20100525
  Serious: Yes (Hospitalization)
  Sender: FDA-Public Use
  Company Number: IT-PFIZER INC-2002002667

PATIENT
  Age: 41 Year

DRUGS (4)
  1. ZIPRASIDONE HCL [Suspect]
     Indication: SCHIZOPHRENIA
     Dosage: 80 MG, 2X/DAY
     Route: 048
     Dates: start: 20020613, end: 20020725
  2. PROMETHAZINE HCL [Concomitant]
     Route: 048
     Dates: start: 20020723
  3. EN [Concomitant]
     Route: 048
     Dates: start: 20000101
  4. HALOPERIDOL [Concomitant]

REACTIONS (2)
  - AGGRESSION [None]
  - AGITATION [None]
